FAERS Safety Report 16255525 (Version 2)
Quarter: 2019Q4

REPORT INFORMATION
  Report Type: Report from Study
  Country: FR (occurrence: FR)
  Receive Date: 20190430
  Receipt Date: 20191114
  Transmission Date: 20200122
  Serious: Yes (Life-Threatening, Hospitalization, Other)
  Sender: FDA-Public Use
  Company Number: FR-MYLANLABS-2019M1039857

PATIENT
  Age: 34 Year
  Sex: Male
  Weight: 63 kg

DRUGS (2)
  1. PREDNISONE. [Suspect]
     Active Substance: PREDNISONE
     Indication: GRAFT VERSUS HOST DISEASE
     Dosage: 60 MG, QD
     Route: 048
     Dates: start: 20180713
  2. NEORAL [Suspect]
     Active Substance: CYCLOSPORINE
     Indication: PRODUCT USED FOR UNKNOWN INDICATION
     Dosage: 160 MG, UNK
     Route: 048

REACTIONS (27)
  - Rectal haemorrhage [Unknown]
  - Blood bicarbonate decreased [Unknown]
  - Soft tissue necrosis [Not Recovered/Not Resolved]
  - Haemodynamic instability [Unknown]
  - Traumatic haematoma [Unknown]
  - Hypotension [Unknown]
  - Septic shock [Not Recovered/Not Resolved]
  - Thrombocytopenia [Unknown]
  - Necrotising fasciitis [Unknown]
  - Pancytopenia [Unknown]
  - Pain in extremity [Recovering/Resolving]
  - Graft versus host disease [Unknown]
  - Acute respiratory failure [Unknown]
  - Brain natriuretic peptide increased [Unknown]
  - Somnolence [Unknown]
  - Atrial fibrillation [Recovering/Resolving]
  - Oxygen saturation decreased [Unknown]
  - Rhabdomyolysis [Unknown]
  - Metabolic acidosis [Unknown]
  - Condition aggravated [Unknown]
  - Diarrhoea [Unknown]
  - Malaise [Unknown]
  - Pyrexia [Unknown]
  - Coma scale abnormal [Unknown]
  - Blister [Unknown]
  - Dermo-hypodermitis [Unknown]
  - Acute kidney injury [Unknown]

NARRATIVE: CASE EVENT DATE: 20180821
